FAERS Safety Report 12516945 (Version 3)
Quarter: 2016Q3

REPORT INFORMATION
  Report Type: Spontaneous
  Country: LB (occurrence: LB)
  Receive Date: 20160630
  Receipt Date: 20160725
  Transmission Date: 20161109
  Serious: Yes (Hospitalization)
  Sender: FDA-Public Use
  Company Number: LB-ABBVIE-16P-093-1663472-00

PATIENT
  Age: 52 Year
  Sex: Male

DRUGS (5)
  1. COPEGUS [Concomitant]
     Active Substance: RIBAVIRIN
     Indication: HEPATITIS C
     Route: 048
  2. VIEKIRAX [Suspect]
     Active Substance: OMBITASVIR\PARITAPREVIR\RITONAVIR
     Indication: HEPATIC CIRRHOSIS
  3. EPOETIN [Concomitant]
     Active Substance: ERYTHROPOIETIN
     Indication: HAEMATOCRIT DECREASED
  4. VIEKIRAX [Suspect]
     Active Substance: OMBITASVIR\PARITAPREVIR\RITONAVIR
     Indication: CHRONIC HEPATITIS C
     Dosage: 2 TABLETS AM WITH FOOD
     Route: 048
  5. EPOETIN [Concomitant]
     Active Substance: ERYTHROPOIETIN
     Indication: HAEMOGLOBIN DECREASED

REACTIONS (4)
  - Hyperhidrosis [Unknown]
  - Blood bilirubin increased [Not Recovered/Not Resolved]
  - Dyspnoea [Recovering/Resolving]
  - Fatigue [Unknown]
